FAERS Safety Report 12887343 (Version 1)
Quarter: 2016Q4

REPORT INFORMATION
  Report Type: Report from Study
  Country: US (occurrence: US)
  Receive Date: 20161026
  Receipt Date: 20161026
  Transmission Date: 20170207
  Serious: Yes (Death)
  Sender: FDA-Public Use
  Company Number: US-JAZZ-2016-US-014185

PATIENT
  Sex: Male

DRUGS (1)
  1. DEFIBROTIDE (INV) [Suspect]
     Active Substance: DEFIBROTIDE SODIUM
     Indication: VENOOCCLUSIVE DISEASE
     Dosage: 1840 MG, QD
     Dates: start: 20141024, end: 20141202

REACTIONS (1)
  - Engraft failure [Fatal]

NARRATIVE: CASE EVENT DATE: 20141030
